FAERS Safety Report 24352886 (Version 1)
Quarter: 2024Q3

REPORT INFORMATION
  Report Type: Report from Study
  Country: BG (occurrence: BG)
  Receive Date: 20240923
  Receipt Date: 20240923
  Transmission Date: 20241017
  Serious: No
  Sender: ROCHE
  Company Number: BG-ROCHE-3468944

PATIENT
  Age: 71 Year
  Sex: Female
  Weight: 57.0 kg

DRUGS (12)
  1. HERCEPTIN [Suspect]
     Active Substance: TRASTUZUMAB
     Indication: HER2 positive breast cancer
     Dosage: MOST RECENT DOSE OF TRASTUZUMAB RECEIVED ON 28/FEB/2019
     Route: 042
     Dates: start: 20170101
  2. XELODA [Suspect]
     Active Substance: CAPECITABINE
     Indication: HER2 positive breast cancer
     Dosage: MOST RECENT DOSE OF CAPECITABINE RECEIVED ON OCT/2017
     Route: 048
     Dates: start: 20170403
  3. KADCYLA [Suspect]
     Active Substance: ADO-TRASTUZUMAB EMTANSINE
     Indication: HER2 positive breast cancer
     Dosage: MOST RECENT DOSE OF TRASTUZUMAB EMTANSINE PRIOR TO THE EVENT: 10/AUG/2020
     Route: 042
     Dates: start: 20190326, end: 20200730
  4. PERJETA [Suspect]
     Active Substance: PERTUZUMAB
     Indication: HER2 positive breast cancer
     Dosage: MOST RECENT DOSE OF PERTUZUMABRECEIVED ON 28/FEB/2019
     Route: 042
     Dates: start: 20170403
  5. FLUOROPLEX [Suspect]
     Active Substance: FLUOROURACIL
     Indication: HER2 positive breast cancer
     Dosage: MOST RECENT DOSE OF FLUOROURACIL RECEIVED ON 12/DEC/2016
     Route: 042
     Dates: start: 20161031
  6. CYTOXAN [Suspect]
     Active Substance: CYCLOPHOSPHAMIDE
     Indication: HER2 positive breast cancer
     Dosage: MOST RECENT DOSE OF CYCLOPHOSPHAMIDE RECEIVED ON 12/DEC/2016
     Route: 042
     Dates: start: 20161031
  7. ELLENCE [Suspect]
     Active Substance: EPIRUBICIN HYDROCHLORIDE
     Indication: HER2 positive breast cancer
     Dosage: MOST RECENT DOSE OF EPIRUBICIN RECEIVED ON 12/DEC/2016
     Route: 042
     Dates: start: 20161031
  8. TAXOTERE [Suspect]
     Active Substance: DOCETAXEL
     Indication: HER2 positive breast cancer
     Dosage: MOST RECENT DOSE OF DOCETAXEL RECEIVED ON 08/MAR/2017
     Route: 042
     Dates: start: 20170125
  9. FEMARA [Suspect]
     Active Substance: LETROZOLE
     Indication: HER2 positive breast cancer
     Dosage: MOST RECENT DOSE OF LETROZOLE RECEIVED ON 28/FEB/2019
     Route: 048
     Dates: start: 20170901
  10. TICAGRELOR [Concomitant]
     Active Substance: TICAGRELOR
     Dosage: ONGOING = NOT CHECKED
     Dates: end: 20200816
  11. HYDROCHLOROTHIAZIDE\VALSARTAN [Concomitant]
     Active Substance: HYDROCHLOROTHIAZIDE\VALSARTAN
     Dosage: ONGOING = NOT CHECKED
     Dates: end: 20200816
  12. BISOPROLOL FUMARATE [Concomitant]
     Active Substance: BISOPROLOL FUMARATE
     Dosage: ONGOING = NOT CHECKED
     Dates: end: 20200816

REACTIONS (1)
  - Thrombocytopenia [Not Recovered/Not Resolved]

NARRATIVE: CASE EVENT DATE: 20200810
